FAERS Safety Report 25124615 (Version 1)
Quarter: 2025Q1

REPORT INFORMATION
  Report Type: Report from Study
  Country: US (occurrence: US)
  Receive Date: 20250326
  Receipt Date: 20250326
  Transmission Date: 20250408
  Serious: Yes (Other)
  Sender: TAKEDA
  Company Number: US-TAKEDA-2025TUS022894

PATIENT
  Sex: Female

DRUGS (1)
  1. HUMAN IMMUNOGLOBULIN G [Suspect]
     Active Substance: HUMAN IMMUNOGLOBULIN G
     Indication: Immunodeficiency common variable
     Dosage: UNK, Q4WEEKS
     Dates: end: 20250111

REACTIONS (6)
  - Autoimmune thyroiditis [Unknown]
  - Adrenal insufficiency [Unknown]
  - Product use issue [Unknown]
  - Insurance issue [Unknown]
  - Anxiety [Unknown]
  - Malaise [Unknown]
